FAERS Safety Report 10479051 (Version 7)
Quarter: 2015Q1

REPORT INFORMATION
  Report Type: Report from Study
  Country: US (occurrence: US)
  Receive Date: 20140926
  Receipt Date: 20150310
  Transmission Date: 20150720
  Serious: Yes (Other)
  Sender: FDA-Public Use
  Company Number: PHEH2014US010494

PATIENT
  Age: 30 Year
  Sex: Female
  Weight: 102.4 kg

DRUGS (8)
  1. GILENYA [Suspect]
     Active Substance: FINGOLIMOD HYDROCHLORIDE
     Indication: MULTIPLE SCLEROSIS
     Dosage: 0.5 MG, QD
     Route: 065
     Dates: start: 20130201, end: 20131210
  2. PROAIR (FLUTICASONE PROPIONATE) [Suspect]
     Active Substance: FLUTICASONE PROPIONATE
     Indication: ASTHMA
     Route: 065
     Dates: start: 20060101
  3. AVONEX [Suspect]
     Active Substance: INTERFERON BETA-1A
     Indication: PRODUCT USED FOR UNKNOWN INDICATION
     Route: 065
  4. RABIFAST [Suspect]
     Active Substance: RABEPRAZOLE SODIUM
     Indication: PRODUCT USED FOR UNKNOWN INDICATION
     Route: 065
  5. IRON [Suspect]
     Active Substance: IRON
     Indication: IRON DEFICIENCY
     Dosage: 28 MG, QD
     Route: 048
  6. PRENATAL [Concomitant]
     Active Substance: VITAMINS
     Indication: PRODUCT USED FOR UNKNOWN INDICATION
     Route: 065
     Dates: start: 20131208
  7. ACICLOVIR [Suspect]
     Active Substance: ACYCLOVIR
     Indication: ASTHMA
     Dosage: 400 MG, BID
     Route: 048
  8. SYMBICORT [Suspect]
     Active Substance: BUDESONIDE\FORMOTEROL FUMARATE DIHYDRATE
     Indication: ASTHMA
     Route: 065
     Dates: start: 20130201

REACTIONS (4)
  - Maternal exposure during pregnancy [Recovered/Resolved]
  - Eclampsia [Unknown]
  - Premature labour [Unknown]
  - Glucose tolerance impaired in pregnancy [Unknown]

NARRATIVE: CASE EVENT DATE: 20140613
